FAERS Safety Report 5491863-X (Version None)
Quarter: 2007Q4

REPORT INFORMATION
  Report Type: 
  Country: None (occurrence: None)
  Receive Date: 20071022
  Receipt Date: 20071011
  Transmission Date: 20080405
  Serious: Yes (Other)
  Sender: FDA-Public Use
  Company Number: PHEH2006US01753

PATIENT
  Age: 60 Year
  Sex: Female
  Weight: 68.027 kg

DRUGS (1)
  1. GLEEVEC [Suspect]
     Indication: GASTROINTESTINAL STROMAL TUMOUR
     Dosage: 400 MG, QD
     Route: 048
     Dates: start: 20050101, end: 20060101

REACTIONS (3)
  - COUGH [None]
  - LUNG DISORDER [None]
  - NODULE [None]
